FAERS Safety Report 16973344 (Version 1)
Quarter: 2019Q4

REPORT INFORMATION
  Report Type: Spontaneous
  Country: US (occurrence: US)
  Receive Date: 20191030
  Receipt Date: 20191030
  Transmission Date: 20200122
  Serious: Yes (Hospitalization, Other)
  Sender: FDA-Public Use
  Company Number: US-APOTEX-2019AP024226

PATIENT
  Age: 84 Year
  Sex: Male

DRUGS (3)
  1. GABAPENTIN. [Concomitant]
     Active Substance: GABAPENTIN
     Indication: NEURALGIA
     Dosage: 300 MG, TID
     Route: 065
  2. ROPINIROLE. [Suspect]
     Active Substance: ROPINIROLE
     Indication: RESTLESS LEGS SYNDROME
     Dosage: 1 MG, QD
     Route: 065
  3. ROPINIROLE. [Suspect]
     Active Substance: ROPINIROLE
     Dosage: 3 MG, QD (DOSE TITRATED TO 3 MG/DAY WITHIN ONE WEEK SPAN)
     Route: 065

REACTIONS (3)
  - Psychotic symptom [Recovered/Resolved]
  - Bipolar disorder [Recovered/Resolved]
  - Affective disorder [Recovered/Resolved]
